FAERS Safety Report 22107457 (Version 4)
Quarter: 2023Q2

REPORT INFORMATION
  Report Type: Report from Study
  Country: US (occurrence: US)
  Receive Date: 20230317
  Receipt Date: 20230615
  Transmission Date: 20230722
  Serious: Yes (Hospitalization, Other)
  Sender: FDA-Public Use
  Company Number: US-ABBVIE-4343384

PATIENT
  Age: 37 Year
  Sex: Male

DRUGS (2)
  1. HUMIRA [Suspect]
     Active Substance: ADALIMUMAB
     Indication: Crohn^s disease
     Dosage: CITRATE FREE
     Route: 058
     Dates: start: 20200213, end: 20200408
  2. HUMIRA [Suspect]
     Active Substance: ADALIMUMAB
     Dosage: CITRATE FREE
     Route: 058
     Dates: start: 20200730

REACTIONS (15)
  - Hospitalisation [Recovered/Resolved]
  - Tooth infection [Not Recovered/Not Resolved]
  - Nervous system disorder [Unknown]
  - Unevaluable event [Unknown]
  - Urinary retention [Unknown]
  - Tooth loss [Unknown]
  - Gingival recession [Unknown]
  - Gingival pain [Unknown]
  - Malabsorption [Unknown]
  - Amnesia [Unknown]
  - Bradycardia [Unknown]
  - Dizziness [Unknown]
  - Guillain-Barre syndrome [Unknown]
  - Dehydration [Unknown]
  - Tachycardia [Unknown]

NARRATIVE: CASE EVENT DATE: 20230523
